FAERS Safety Report 20476870 (Version 2)
Quarter: 2022Q2

REPORT INFORMATION
  Report Type: Spontaneous
  Country: US (occurrence: US)
  Receive Date: 20220215
  Receipt Date: 20220418
  Transmission Date: 20220721
  Serious: No
  Sender: FDA-Public Use
  Company Number: US-SANOFI-00969242

PATIENT
  Age: 56 Year
  Sex: Female

DRUGS (2)
  1. DUPIXENT [Suspect]
     Active Substance: DUPILUMAB
     Indication: Dermatitis atopic
     Dosage: 600 MG, 1X
     Dates: start: 20220111, end: 20220111
  2. DUPIXENT [Suspect]
     Active Substance: DUPILUMAB
     Dosage: 300 MG, QOW
     Dates: start: 20220125

REACTIONS (5)
  - Flushing [Unknown]
  - Injection site rash [Unknown]
  - Eye irritation [Unknown]
  - Erythema [Unknown]
  - Rash [Unknown]

NARRATIVE: CASE EVENT DATE: 20220101
